FAERS Safety Report 7156984-4 (Version None)
Quarter: 2010Q4

REPORT INFORMATION
  Report Type: 
  Country: None (occurrence: None)
  Receive Date: 20101214
  Receipt Date: 20100114
  Transmission Date: 20110411
  Serious: No
  Sender: FDA-Public Use
  Company Number: US-ASTRAZENECA-2010SE01788

PATIENT
  Sex: Female

DRUGS (1)
  1. CRESTOR [Suspect]
     Route: 048
     Dates: start: 20090707

REACTIONS (1)
  - FLUSHING [None]
